FAERS Safety Report 19177046 (Version 3)
Quarter: 2021Q2

REPORT INFORMATION
  Report Type: Report from Study
  Country: IE (occurrence: IE)
  Receive Date: 20210424
  Receipt Date: 20210621
  Transmission Date: 20210717
  Serious: Yes (Other)
  Sender: FDA-Public Use
  Company Number: NVSC2021IE084924

PATIENT
  Sex: Male

DRUGS (1)
  1. AFINITOR [Suspect]
     Active Substance: EVEROLIMUS
     Indication: NEUROENDOCRINE TUMOUR
     Dosage: 7.5 MG
     Route: 065
     Dates: start: 20210325, end: 20210505

REACTIONS (4)
  - Fatigue [Unknown]
  - Skin disorder [Unknown]
  - Diarrhoea [Unknown]
  - Herpes zoster [Recovering/Resolving]
